FAERS Safety Report 5194481-6 (Version None)
Quarter: 2006Q4

REPORT INFORMATION
  Report Type: 
  Country: None (occurrence: None)
  Receive Date: 20061226
  Receipt Date: 20061211
  Transmission Date: 20070319
  Serious: Yes (Other)
  Sender: FDA-Public Use
  Company Number: HQWYE349822JUL04

PATIENT
  Age: 60 Year
  Sex: Female

DRUGS (2)
  1. PREMARIN [Suspect]
     Dates: start: 19850101, end: 19950101
  2. PROVERA [Suspect]
     Dates: start: 19850101, end: 19950101

REACTIONS (5)
  - BREAST CANCER RECURRENT [None]
  - LYMPHOID TISSUE HYPERPLASIA [None]
  - OESTROGEN RECEPTOR ASSAY POSITIVE [None]
  - PROGESTERONE RECEPTOR ASSAY POSITIVE [None]
  - ROSAI-DORFMAN SYNDROME [None]
